FAERS Safety Report 19815242 (Version 1)
Quarter: 2021Q3

REPORT INFORMATION
  Report Type: Spontaneous
  Country: US (occurrence: US)
  Receive Date: 20210910
  Receipt Date: 20210910
  Transmission Date: 20211014
  Serious: Yes (Hospitalization, Other)
  Sender: FDA-Public Use
  Company Number: US-ASTRAZENECA-2021A713609

PATIENT
  Age: 970 Month
  Sex: Female
  Weight: 106.6 kg

DRUGS (3)
  1. BYDUREON BCISE [Suspect]
     Active Substance: EXENATIDE
     Indication: DIABETES MELLITUS
     Route: 058
  2. BYDUREON [Concomitant]
     Active Substance: EXENATIDE
     Indication: DIABETES MELLITUS
     Route: 058
  3. BYETTA [Suspect]
     Active Substance: EXENATIDE
     Indication: DIABETES MELLITUS
     Route: 058

REACTIONS (10)
  - Nausea [Recovered/Resolved]
  - Illness [Unknown]
  - Drug ineffective [Unknown]
  - Retching [Recovered/Resolved]
  - Abdominal discomfort [Unknown]
  - Flatulence [Unknown]
  - Product dose omission issue [Unknown]
  - Limb injury [Unknown]
  - Product use issue [Unknown]
  - Fall [Unknown]

NARRATIVE: CASE EVENT DATE: 202108
